FAERS Safety Report 11121138 (Version 1)
Quarter: 2015Q2

REPORT INFORMATION
  Report Type: Spontaneous
  Country: AR (occurrence: None)
  Receive Date: 20150515
  Receipt Date: 20150515
  Transmission Date: 20150821
  Serious: Yes (Hospitalization)
  Sender: FDA-Public Use
  Company Number: AR-2015VAL000304

PATIENT
  Age: 29 Year
  Sex: Female

DRUGS (1)
  1. METHYLERGONOVINE MALEATE. [Suspect]
     Active Substance: METHYLERGONOVINE MALEATE
     Indication: HAEMORRHAGE

REACTIONS (3)
  - Haemorrhage [None]
  - Drug dose omission [None]
  - Treatment noncompliance [None]
